FAERS Safety Report 18159501 (Version 1)
Quarter: 2020Q3

REPORT INFORMATION
  Report Type: Spontaneous
  Country: DE (occurrence: DE)
  Receive Date: 20200818
  Receipt Date: 20200818
  Transmission Date: 20201103
  Serious: Yes (Other)
  Sender: FDA-Public Use
  Company Number: DE-HRARD-202000164

PATIENT
  Sex: Female

DRUGS (4)
  1. LYSODREN [Suspect]
     Active Substance: MITOTANE
     Indication: ADRENOCORTICAL CARCINOMA
     Dosage: POSOLOGY REPORTED AS 4?4?4 TABLETS
     Dates: end: 20190829
  2. LYSODREN [Suspect]
     Active Substance: MITOTANE
     Indication: ADRENOCORTICAL CARCINOMA
     Dates: start: 20190513
  3. LYSODREN [Suspect]
     Active Substance: MITOTANE
     Indication: ADRENOCORTICAL CARCINOMA
     Dosage: POSOLOGY REPORTED AS 5?4?5 TABLETS
     Dates: start: 20190830, end: 20191022
  4. LYSODREN [Suspect]
     Active Substance: MITOTANE
     Indication: ADRENOCORTICAL CARCINOMA
     Dosage: POSOLOGY REPORTED AS 3?2?2 TABLETS, STEP?BY?STEP DOSAGE REDUCTION FROM 23 OCT 2019
     Dates: start: 20200206

REACTIONS (11)
  - Hypothyroidism [Not Recovered/Not Resolved]
  - Haemorrhoids thrombosed [Recovered/Resolved]
  - Amenorrhoea [Not Recovered/Not Resolved]
  - Ovarian cyst [Not Recovered/Not Resolved]
  - Weight decreased [Unknown]
  - Burning sensation [Unknown]
  - Diarrhoea [Recovered/Resolved]
  - Paraesthesia [Unknown]
  - Off label use [Unknown]
  - Helicobacter gastritis [Not Recovered/Not Resolved]
  - Hair growth abnormal [Unknown]

NARRATIVE: CASE EVENT DATE: 2019
